FAERS Safety Report 7373691-3 (Version None)
Quarter: 2011Q1

REPORT INFORMATION
  Report Type: 
  Country: None (occurrence: None)
  Receive Date: 20110325
  Receipt Date: 20101006
  Transmission Date: 20110831
  Serious: Yes (Hospitalization, Other)
  Sender: FDA-Public Use
  Company Number: US-BAYER-201034793NA

PATIENT
  Sex: Female
  Weight: 65.76 kg

DRUGS (7)
  1. CIPROFLOXACIN [Concomitant]
  2. YAZ [Suspect]
     Route: 048
  3. ADDERALL 10 [Concomitant]
  4. FLUCONAZOLE [Concomitant]
  5. OLOPATADINE [Concomitant]
  6. YASMIN [Suspect]
     Dosage: UNK
     Route: 048
     Dates: start: 20070101, end: 20070101
  7. AZITHROMYCIN [Concomitant]

REACTIONS (1)
  - THROMBOSIS [None]
